FAERS Safety Report 20528657 (Version 1)
Quarter: 2022Q1

REPORT INFORMATION
  Report Type: Spontaneous
  Country: DE (occurrence: DE)
  Receive Date: 20220228
  Receipt Date: 20220228
  Transmission Date: 20220424
  Serious: Yes (Hospitalization, Other)
  Sender: FDA-Public Use
  Company Number: DE-NOVARTISPH-NVSC2022DE043622

PATIENT
  Age: 57 Year
  Sex: Female
  Weight: 68 kg

DRUGS (44)
  1. DEXAMETHASONE [Suspect]
     Active Substance: DEXAMETHASONE
     Indication: Plasma cell myeloma
     Dosage: 4 MG
     Route: 048
     Dates: start: 20210728, end: 20210801
  2. DEXAMETHASONE [Suspect]
     Active Substance: DEXAMETHASONE
     Dosage: UNK
     Route: 048
     Dates: start: 20210728, end: 20210801
  3. DEXAMETHASONE [Suspect]
     Active Substance: DEXAMETHASONE
     Dosage: 20 MG, QD
     Route: 065
     Dates: start: 20210225, end: 20210606
  4. BISOPROLOL FUMARATE [Suspect]
     Active Substance: BISOPROLOL FUMARATE
     Indication: Product used for unknown indication
     Dosage: 1.25 MG, QD
     Route: 048
     Dates: start: 20210803
  5. BISOPROLOL FUMARATE [Suspect]
     Active Substance: BISOPROLOL FUMARATE
     Indication: Product used for unknown indication
     Dosage: 1.25 MG, QD
     Route: 048
     Dates: start: 20210803
  6. CARFILZOMIB [Suspect]
     Active Substance: CARFILZOMIB
     Indication: Plasma cell myeloma
     Dosage: 36 MILLIGRAM, QD
     Route: 065
     Dates: start: 20210225, end: 20210606
  7. ACYCLOVIR [Concomitant]
     Active Substance: ACYCLOVIR
     Indication: Antiviral prophylaxis
     Dosage: 400 MG, 1-2-1
     Route: 048
     Dates: start: 20210727
  8. ENOXAPARIN SODIUM [Concomitant]
     Active Substance: ENOXAPARIN SODIUM
     Indication: Thrombosis prophylaxis
     Dosage: 40 MG, QD
     Route: 058
     Dates: start: 20210728
  9. SINGULAIR [Concomitant]
     Active Substance: MONTELUKAST SODIUM
     Indication: Product used for unknown indication
     Dosage: 10 MILLIGRAM
     Route: 048
  10. ALLOPURINOL [Concomitant]
     Active Substance: ALLOPURINOL
     Indication: Weight increased
     Dosage: 300 MILLIGRAM 1 IN 1 D
     Route: 048
     Dates: start: 20210731
  11. ACETAMINOPHEN [Concomitant]
     Active Substance: ACETAMINOPHEN
     Indication: Product used for unknown indication
     Dosage: 500 MILLIGRAM
     Route: 048
  12. FAMOTIDINE [Concomitant]
     Active Substance: FAMOTIDINE
     Indication: Product used for unknown indication
     Dosage: UNK
     Route: 042
  13. DARATUMUMAB [Concomitant]
     Active Substance: DARATUMUMAB
     Indication: Plasma cell myeloma
     Dosage: 1072 MILLIGRAM
     Route: 065
     Dates: start: 20210728, end: 20210802
  14. POTASSIUM CHLORIDE [Concomitant]
     Active Substance: POTASSIUM CHLORIDE
     Indication: Mineral supplementation
     Dosage: 40 MILLIMOLE, QD
     Route: 048
     Dates: start: 20210703
  15. COTRIM [Concomitant]
     Active Substance: SULFAMETHOXAZOLE\TRIMETHOPRIM
     Indication: Antibiotic prophylaxis
     Dosage: 960 MILLIGRAM, (1-0-0)
     Route: 048
     Dates: start: 20210730
  16. ZANTAC [Concomitant]
     Active Substance: RANITIDINE HYDROCHLORIDE
     Indication: Product used for unknown indication
     Dosage: UNK
     Route: 065
  17. LIPEGFILGRASTIM [Concomitant]
     Active Substance: LIPEGFILGRASTIM
     Indication: Product used for unknown indication
     Dosage: UNK
     Route: 065
  18. FLUDARABINE [Concomitant]
     Active Substance: FLUDARABINE PHOSPHATE
     Indication: Plasma cell myeloma
     Dosage: UNK
     Route: 065
  19. LIOTHYRONINE SODIUM [Concomitant]
     Active Substance: LIOTHYRONINE SODIUM
     Indication: Hypothyroidism
     Dosage: 100 MICROGRAM ,1 IN 1 D
     Route: 048
  20. LIOTHYRONINE SODIUM [Concomitant]
     Active Substance: LIOTHYRONINE SODIUM
     Dosage: 100 MILLIGRAM, QD
     Route: 048
  21. COTRIMOXAZOLE [Concomitant]
     Active Substance: SULFAMETHOXAZOLE\TRIMETHOPRIM
     Indication: Product used for unknown indication
     Dosage: UNK
     Route: 065
  22. COTRIMOXAZOLE [Concomitant]
     Active Substance: SULFAMETHOXAZOLE\TRIMETHOPRIM
     Dosage: UNK, (QD 0.3 WEEK)
     Route: 048
  23. THALIDOMIDE [Concomitant]
     Active Substance: THALIDOMIDE
     Indication: Plasma cell myeloma
     Dosage: 100 MILLIGRAM, QD
     Route: 048
     Dates: start: 20210729, end: 20210811
  24. CISPLATIN [Concomitant]
     Active Substance: CISPLATIN
     Indication: Plasma cell myeloma
     Dosage: 18.7 MILLIGRAM
     Route: 065
     Dates: start: 20210729, end: 20210801
  25. CYCLOPHOSPHAMIDE ANHYDROUS [Concomitant]
     Active Substance: CYCLOPHOSPHAMIDE ANHYDROUS
     Indication: Plasma cell myeloma
     Dosage: 550 MILLIGRAM
     Route: 065
     Dates: start: 20210729, end: 20210801
  26. ZANTAC [Concomitant]
     Active Substance: RANITIDINE HYDROCHLORIDE
     Indication: Product used for unknown indication
     Dosage: 20 MILLIGRAM
     Route: 042
  27. ETOPOSIDE [Concomitant]
     Active Substance: ETOPOSIDE
     Indication: Plasma cell myeloma
     Dosage: 55 MILLIGRAM
     Route: 065
     Dates: start: 20210729, end: 20210801
  28. BOOSTRIX [Concomitant]
     Active Substance: TETANUS TOXOID, REDUCED DIPHTHERIA TOXOID AND ACELLULAR PERTUSSIS VACCINE, ADSORBED ANTIGENS
     Indication: Product used for unknown indication
     Dosage: UNK
     Route: 065
  29. TORSEMIDE [Concomitant]
     Active Substance: TORSEMIDE
     Indication: Weight increased
     Dosage: UNK 20-10-0 MG
     Route: 048
     Dates: start: 20210729
  30. MESNA [Concomitant]
     Active Substance: MESNA
     Indication: Product used for unknown indication
     Dosage: UNK, (ORALLY OR INTRAVENOUS)
     Route: 065
  31. MESNA [Concomitant]
     Active Substance: MESNA
     Dosage: UNK
     Route: 048
  32. BORTEZOMIB [Concomitant]
     Active Substance: BORTEZOMIB
     Indication: Plasma cell myeloma
     Dosage: 2.38 MILLIGRAM, DAY 4, 8,11
     Route: 058
     Dates: start: 20210729, end: 20210804
  33. SODIUM CHLORIDE [Concomitant]
     Active Substance: SODIUM CHLORIDE
     Indication: Product used for unknown indication
     Dosage: UNK
     Route: 065
  34. SODIUM CHLORIDE [Concomitant]
     Active Substance: SODIUM CHLORIDE
     Dosage: 500 MILLIGRAM
     Route: 042
  35. SULFAMETHOXAZOLE\TRIMETHOPRIM [Concomitant]
     Active Substance: SULFAMETHOXAZOLE\TRIMETHOPRIM
     Indication: Antibiotic prophylaxis
     Dosage: 960 MILLIGRAM  1-0-0
     Route: 048
     Dates: start: 20210730
  36. GRANISETRON [Concomitant]
     Active Substance: GRANISETRON
     Indication: Product used for unknown indication
     Dosage: UNK
     Route: 065
  37. GRANISETRON [Concomitant]
     Active Substance: GRANISETRON
     Dosage: 3 MILLIGRAM
     Route: 042
  38. CLEMASTINE FUMARATE [Concomitant]
     Active Substance: CLEMASTINE FUMARATE
     Indication: Product used for unknown indication
     Dosage: UNK
     Route: 065
  39. CLEMASTINE FUMARATE [Concomitant]
     Active Substance: CLEMASTINE FUMARATE
     Dosage: 2 MILLIGRAM
     Route: 042
  40. ENOXAPARIN [Concomitant]
     Active Substance: ENOXAPARIN
     Indication: Product used for unknown indication
     Dosage: 100 MILLIGRAM
     Route: 048
  41. ENOXAPARIN [Concomitant]
     Active Substance: ENOXAPARIN
     Dosage: UNK, (ORALLY OR SUBCUTANEOUS)
     Route: 065
  42. KALINOR [Concomitant]
     Indication: Mineral supplementation
     Dosage: 40 MILLIMOLE 1 IN 1 D
     Route: 048
     Dates: start: 20210703
  43. BISOPROLOL [Concomitant]
     Active Substance: BISOPROLOL
     Indication: Product used for unknown indication
     Dosage: 1.25 MILLIGRAM 1 IN 1 D
     Route: 048
     Dates: start: 20210803
  44. DOXORUBICIN [Concomitant]
     Active Substance: DOXORUBICIN
     Indication: Plasma cell myeloma
     Dosage: 7.32 MILLIGRAM
     Route: 065
     Dates: start: 20210729, end: 20210801

REACTIONS (3)
  - Skin laceration [Recovered/Resolved]
  - Fall [Recovered/Resolved]
  - Syncope [Recovered/Resolved with Sequelae]

NARRATIVE: CASE EVENT DATE: 20210803
